FAERS Safety Report 22758000 (Version 2)
Quarter: 2024Q3

REPORT INFORMATION
  Report Type: Spontaneous
  Country: IT (occurrence: IT)
  Receive Date: 20230727
  Receipt Date: 20240726
  Transmission Date: 20241016
  Serious: Yes (Other)
  Sender: VERTEX
  Company Number: IT-VERTEX PHARMACEUTICALS-2023-010800

PATIENT
  Age: 27 Year
  Sex: Male

DRUGS (2)
  1. ELEXACAFTOR\IVACAFTOR\TEZACAFTOR [Suspect]
     Active Substance: ELEXACAFTOR\IVACAFTOR\TEZACAFTOR
     Indication: Cystic fibrosis
     Dosage: UNK FREQ (75MG IVA/ 50MG TEZA/ 100MG ELEXA)
     Route: 048
  2. KALYDECO [Suspect]
     Active Substance: IVACAFTOR
     Indication: Cystic fibrosis
     Dosage: UNK FREQ
     Route: 048

REACTIONS (3)
  - Hyperbilirubinaemia [Recovering/Resolving]
  - Hepatic cirrhosis [Unknown]
  - Gilbert^s syndrome [Unknown]
